FAERS Safety Report 12502875 (Version 1)
Quarter: 2016Q2

REPORT INFORMATION
  Report Type: Report from Study
  Country: US (occurrence: US)
  Receive Date: 20160628
  Receipt Date: 20160628
  Transmission Date: 20160815
  Serious: No
  Sender: FDA-Public Use
  Company Number: US-AMGEN-USASL2016081807

PATIENT
  Age: 49 Year
  Sex: Male

DRUGS (1)
  1. ENBREL [Suspect]
     Active Substance: ETANERCEPT
     Indication: RHEUMATOID ARTHRITIS
     Dosage: UNK
     Route: 065
     Dates: start: 201505

REACTIONS (6)
  - Back pain [Unknown]
  - Sneezing [Unknown]
  - Arthralgia [Unknown]
  - Chest pain [Unknown]
  - Inappropriate schedule of drug administration [Unknown]
  - Cough [Unknown]

NARRATIVE: CASE EVENT DATE: 201604
